FAERS Safety Report 18303257 (Version 1)
Quarter: 2020Q3

REPORT INFORMATION
  Report Type: Spontaneous
  Country: CA (occurrence: CA)
  Receive Date: 20200923
  Receipt Date: 20200923
  Transmission Date: 20201103
  Serious: Yes (Death)
  Sender: FDA-Public Use
  Company Number: CA-PFIZER INC-2018198326

PATIENT
  Age: 63 Year
  Sex: Male

DRUGS (3)
  1. SUTENT [Suspect]
     Active Substance: SUNITINIB MALATE
     Dosage: 50 MG, CYCLIC (DAILY FOR 21 DAYS ON, 7 DAYS OFF (28 DAYS))
     Route: 048
     Dates: start: 20180519, end: 201905
  2. SUTENT [Suspect]
     Active Substance: SUNITINIB MALATE
     Dosage: 37.5 MG, CYCLIC (FOR 14 DAYS ON, 7 DAYS OFF (21 DAYS))
     Dates: start: 20191022, end: 20191104
  3. SUTENT [Suspect]
     Active Substance: SUNITINIB MALATE
     Dosage: 37.5 MG, CYCLIC (FOR 14 DAYS ON, 7 DAYS OFF (21 DAYS))
     Dates: start: 20191001, end: 20191014

REACTIONS (1)
  - Death [Fatal]

NARRATIVE: CASE EVENT DATE: 202003
